FAERS Safety Report 4660494-3 (Version None)
Quarter: 2005Q2

REPORT INFORMATION
  Report Type: 
  Country: None (occurrence: None)
  Receive Date: 20050511
  Receipt Date: 20050511
  Transmission Date: 20051028
  Serious: Yes (Hospitalization)
  Sender: FDA-Public Use
  Company Number: None

PATIENT
  Age: 59 Year
  Sex: Male
  Weight: 111.6 kg

DRUGS (3)
  1. BUSPIRONE HCL [Suspect]
     Indication: ANXIETY
     Dosage: 2  TAB TID PO
     Route: 048
     Dates: start: 20021201, end: 20050101
  2. TRAZODONE HCL [Suspect]
     Indication: DEPRESSION
     Dosage: 3 TABS QHS PO
     Route: 048
     Dates: start: 20001201, end: 20050220
  3. VENLAFAXINE HCL [Suspect]

REACTIONS (11)
  - DIARRHOEA [None]
  - FALL [None]
  - HYPONATRAEMIA [None]
  - LOSS OF CONSCIOUSNESS [None]
  - MENTAL STATUS CHANGES [None]
  - MUSCLE TWITCHING [None]
  - MYOCLONUS [None]
  - PYREXIA [None]
  - RENAL FAILURE ACUTE [None]
  - RHABDOMYOLYSIS [None]
  - SEROTONIN SYNDROME [None]
